FAERS Safety Report 11318906 (Version 3)
Quarter: 2015Q4

REPORT INFORMATION
  Report Type: Spontaneous
  Country: US (occurrence: US)
  Receive Date: 20150729
  Receipt Date: 20151005
  Transmission Date: 20160304
  Serious: No
  Sender: FDA-Public Use
  Company Number: US-ACTELION PHARMACEUTICALS US, INC.-A-NJ2015-111385

PATIENT
  Age: 50 Year
  Sex: Male

DRUGS (7)
  1. VELETRI [Suspect]
     Active Substance: EPOPROSTENOL
     Dosage: 18 NG/KG, PER MIN
     Route: 042
     Dates: start: 20150108
  2. VELETRI [Suspect]
     Active Substance: EPOPROSTENOL
     Dosage: 24 NG/KG, PER MIN
     Route: 042
  3. WARFARIN [Concomitant]
     Active Substance: WARFARIN
  4. VELETRI [Suspect]
     Active Substance: EPOPROSTENOL
     Indication: PULMONARY ARTERIAL HYPERTENSION
     Dosage: 20 NG/KG, PER MIN
     Route: 042
     Dates: start: 20150108
  5. TREPROSTINIL DIOLAMIN [Concomitant]
     Active Substance: TREPROSTINIL DIOLAMINE
  6. OPSUMIT [Suspect]
     Active Substance: MACITENTAN
     Indication: PULMONARY ARTERIAL HYPERTENSION
     Dosage: 10 MG, QD
     Route: 048
     Dates: start: 20150113
  7. RIOCIGUAT [Suspect]
     Active Substance: RIOCIGUAT
     Indication: PULMONARY ARTERIAL HYPERTENSION
     Dosage: 1 MG, TID
     Route: 065
     Dates: start: 20141120

REACTIONS (26)
  - Device occlusion [Unknown]
  - Catheter placement [Unknown]
  - Arthralgia [Unknown]
  - Cardiac flutter [Unknown]
  - Device leakage [Unknown]
  - Alopecia [Unknown]
  - Condition aggravated [Unknown]
  - Thrombosis in device [Recovered/Resolved]
  - Fatigue [Unknown]
  - Confusional state [Unknown]
  - Product physical issue [Unknown]
  - Skin sensitisation [Unknown]
  - Pain of skin [Unknown]
  - Back pain [Unknown]
  - Bone pain [Unknown]
  - Varicella [Unknown]
  - Headache [Unknown]
  - Musculoskeletal pain [Unknown]
  - Device alarm issue [Recovered/Resolved]
  - Myalgia [Unknown]
  - Syncope [Unknown]
  - Malaise [Unknown]
  - Pain in extremity [Unknown]
  - Drug dose omission [Unknown]
  - Flushing [Unknown]
  - Rash [Unknown]

NARRATIVE: CASE EVENT DATE: 201501
